FAERS Safety Report 6501637-6 (Version None)
Quarter: 2009Q4

REPORT INFORMATION
  Report Type: 
  Country: None (occurrence: None)
  Receive Date: 20091214
  Receipt Date: 20091214
  Transmission Date: 20100525
  Serious: No
  Sender: FDA-Public Use
  Company Number: None

PATIENT
  Sex: Male

DRUGS (1)
  1. COLD REMEDY ZAVORS [Suspect]
     Indication: PROPHYLAXIS AGAINST MOTION SICKNESS
     Dosage: Q 2-3 HRS, 2-3 DOSES
     Dates: start: 20091113, end: 20091114

REACTIONS (3)
  - AGEUSIA [None]
  - DRY MOUTH [None]
  - HYPOSMIA [None]
